FAERS Safety Report 11442987 (Version 1)
Quarter: 2015Q3

REPORT INFORMATION
  Report Type: Spontaneous
  Country: US (occurrence: US)
  Receive Date: 20150901
  Receipt Date: 20150901
  Transmission Date: 20151125
  Serious: No
  Sender: FDA-Public Use
  Company Number: US-TEVA-574533USA

PATIENT
  Age: 43 Year
  Sex: Male

DRUGS (1)
  1. GABITRIL [Suspect]
     Active Substance: TIAGABINE HYDROCHLORIDE
     Dosage: 16 MILLIGRAM DAILY;
     Route: 065

REACTIONS (4)
  - Depression [Recovered/Resolved]
  - Elevated mood [Recovered/Resolved]
  - Intentional product use issue [Unknown]
  - Drug dose omission [Unknown]

NARRATIVE: CASE EVENT DATE: 201506
